FAERS Safety Report 17332281 (Version 1)
Quarter: 2020Q1

REPORT INFORMATION
  Report Type: Spontaneous
  Country: US (occurrence: US)
  Receive Date: 20200113
  Receipt Date: 20200113
  Transmission Date: 20200409
  Serious: No
  Sender: FDA-Public Use
  Company Number: None

PATIENT
  Age: 23 Year
  Sex: Female

DRUGS (1)
  1. COSENTYX [Suspect]
     Active Substance: SECUKINUMAB
     Dosage: OTHER?TO 01/25/2020
     Route: 058
     Dates: start: 20171201

REACTIONS (2)
  - Therapy non-responder [None]
  - Therapy cessation [None]

NARRATIVE: CASE EVENT DATE: 20200113
